FAERS Safety Report 7403772-7 (Version None)
Quarter: 2011Q2

REPORT INFORMATION
  Report Type: 
  Country: None (occurrence: None)
  Receive Date: 20110408
  Receipt Date: 20110331
  Transmission Date: 20111010
  Serious: Yes (Hospitalization, Other)
  Sender: FDA-Public Use
  Company Number: IT-BRISTOL-MYERS SQUIBB COMPANY-15560113

PATIENT
  Age: 85 Year
  Sex: Female

DRUGS (14)
  1. COUMADIN [Suspect]
     Indication: ATRIAL FIBRILLATION
     Dosage: 1DF= 1 UNIT
     Route: 048
     Dates: start: 20100101, end: 20110211
  2. EUTIROX [Concomitant]
  3. CIPRALEX [Concomitant]
     Dosage: FILM COATED TABS 1 UNITS
  4. KCL RETARD [Concomitant]
     Dosage: KCL RETARD TAB PROLONGED RELEASE 2 UNITS
     Route: 048
  5. CACIT [Concomitant]
  6. ZOLOFT [Concomitant]
  7. TRIATEC [Concomitant]
     Dosage: TABS:1 UNIT
  8. EUTIROX [Concomitant]
  9. CORDARONE [Concomitant]
  10. FOSAVANCE [Concomitant]
  11. ANTRA [Concomitant]
     Dosage: MODIFIED RELEASE CABS:1 UNIT
  12. COUMADIN [Suspect]
     Indication: PROPHYLAXIS
     Dosage: 1DF= 1 UNIT
     Route: 048
     Dates: start: 20100101, end: 20110211
  13. ZOLOFT [Concomitant]
     Dosage: ZOLOFT TAB  SINCE 5 DAYS
     Route: 048
     Dates: start: 20110206
  14. LASIX [Concomitant]
     Dosage: TABS:2 UNITS

REACTIONS (8)
  - TONGUE HAEMATOMA [None]
  - HEAD INJURY [None]
  - LIP OEDEMA [None]
  - PALATAL OEDEMA [None]
  - LARYNGEAL OEDEMA [None]
  - ANAEMIA [None]
  - TONGUE OEDEMA [None]
  - FALL [None]
